FAERS Safety Report 17631047 (Version 1)
Quarter: 2020Q2

REPORT INFORMATION
  Report Type: Spontaneous
  Country: US (occurrence: US)
  Receive Date: 20200406
  Receipt Date: 20200406
  Transmission Date: 20200713
  Serious: Yes (Hospitalization)
  Sender: FDA-Public Use
  Company Number: None

PATIENT
  Age: 73 Year
  Sex: Female

DRUGS (9)
  1. CYANOCOBALAM [Concomitant]
     Active Substance: CYANOCOBALAMIN
  2. ENBREL [Suspect]
     Active Substance: ETANERCEPT
     Indication: RHEUMATOID ARTHRITIS
     Dosage: ?          OTHER FREQUENCY:QW;?
     Route: 058
     Dates: start: 20180110
  3. ARMOUR THYRO [Concomitant]
  4. DOXYCYCL HYC [Concomitant]
  5. BENZONATATE. [Concomitant]
     Active Substance: BENZONATATE
  6. TRAZODONE [Concomitant]
     Active Substance: TRAZODONE HYDROCHLORIDE
  7. TRAMADOL. [Concomitant]
     Active Substance: TRAMADOL
  8. CELECOXIB. [Concomitant]
     Active Substance: CELECOXIB
  9. FLUTICASONE. [Concomitant]
     Active Substance: FLUTICASONE

REACTIONS (2)
  - Pain [None]
  - Arthralgia [None]

NARRATIVE: CASE EVENT DATE: 20200218
